FAERS Safety Report 10158617 (Version 1)
Quarter: 2014Q2

REPORT INFORMATION
  Report Type: Spontaneous
  Country: AU (occurrence: AU)
  Receive Date: 20140508
  Receipt Date: 20140508
  Transmission Date: 20141212
  Serious: Yes (Disabling, Other)
  Sender: FDA-Public Use
  Company Number: AU-ROCHE-1396204

PATIENT
  Sex: Male

DRUGS (11)
  1. XOLAIR [Suspect]
     Indication: ASTHMA
     Route: 058
     Dates: start: 20111011
  2. XOLAIR [Suspect]
     Route: 058
     Dates: end: 20120124
  3. XOLAIR [Suspect]
     Route: 058
  4. SERETIDE [Concomitant]
     Dosage: 250/25
     Route: 065
     Dates: start: 2010
  5. TIOTROPIUM [Concomitant]
     Route: 065
     Dates: start: 2011
  6. TOPIRAMATE [Concomitant]
     Dosage: 50 TO 100 MG
     Route: 065
     Dates: start: 2011
  7. PREDNISONE [Concomitant]
     Route: 065
  8. PREDNISONE [Concomitant]
     Route: 065
  9. PREDNISONE [Concomitant]
     Route: 065
  10. ALENDRONATE [Concomitant]
     Route: 048
  11. BECLOMETASONE DIPROPIONATE [Concomitant]

REACTIONS (3)
  - Headache [Recovered/Resolved]
  - Asthma [Unknown]
  - Cataract [Unknown]
